FAERS Safety Report 12210495 (Version 1)
Quarter: 2016Q1

REPORT INFORMATION
  Report Type: Spontaneous
  Country: US (occurrence: US)
  Receive Date: 20160325
  Receipt Date: 20160325
  Transmission Date: 20160526
  Serious: No
  Sender: FDA-Public Use
  Company Number: US-WARNER CHILCOTT, LLC-1049663

PATIENT
  Age: 65 Year
  Sex: Female

DRUGS (6)
  1. ESTRACE [Suspect]
     Active Substance: ESTRADIOL
     Indication: HYSTERECTOMY
     Route: 067
     Dates: start: 1990, end: 201502
  2. ESTRACE [Suspect]
     Active Substance: ESTRADIOL
     Indication: BLADDER PROLAPSE
     Route: 067
     Dates: start: 1990, end: 201502
  3. ESTRACE [Suspect]
     Active Substance: ESTRADIOL
     Indication: BLADDER REPAIR
     Route: 067
     Dates: start: 1990, end: 201502
  4. ESTRACE [Suspect]
     Active Substance: ESTRADIOL
     Indication: ATROPHIC VULVOVAGINITIS
     Route: 067
     Dates: start: 1990, end: 201502
  5. LIPITOR [Concomitant]
     Active Substance: ATORVASTATIN CALCIUM
  6. PRILOSEC [Concomitant]
     Active Substance: OMEPRAZOLE MAGNESIUM

REACTIONS (1)
  - Vaginal haemorrhage [Recovered/Resolved]
